FAERS Safety Report 6870803-2 (Version None)
Quarter: 2010Q3

REPORT INFORMATION
  Report Type: 
  Country: None (occurrence: None)
  Receive Date: 20100723
  Receipt Date: 20100713
  Transmission Date: 20110219
  Serious: Yes (Hospitalization)
  Sender: FDA-Public Use
  Company Number: US-SANOFI-AVENTIS-2010SA040640

PATIENT
  Age: 51 Year
  Sex: Male

DRUGS (4)
  1. ELOXATIN [Suspect]
     Indication: METASTATIC GASTRIC CANCER
     Route: 042
  2. BEVACIZUMAB [Suspect]
     Indication: METASTATIC GASTRIC CANCER
  3. FLUOROURACIL [Suspect]
     Indication: METASTATIC GASTRIC CANCER
     Dates: start: 20100525
  4. LEUCOVORIN CALCIUM [Suspect]
     Indication: METASTATIC GASTRIC CANCER

REACTIONS (4)
  - CONFUSIONAL STATE [None]
  - HYPOXIA [None]
  - LUNG INFILTRATION [None]
  - PYREXIA [None]
